FAERS Safety Report 20832587 (Version 1)
Quarter: 2022Q2

REPORT INFORMATION
  Report Type: Other
  Country: None (occurrence: HR)
  Receive Date: 20220516
  Receipt Date: 20220516
  Transmission Date: 20220720
  Serious: Yes (Other)
  Sender: FDA-Public Use
  Company Number: HR-Nuvo Pharmaceuticals Inc-2128798

PATIENT
  Sex: Male

DRUGS (2)
  1. DIAZEPAM [Suspect]
     Active Substance: DIAZEPAM
     Indication: Psychotic disorder
     Route: 065
  2. FLUVOXAMINE [Concomitant]
     Active Substance: FLUVOXAMINE
     Route: 065

REACTIONS (3)
  - Drug ineffective [Unknown]
  - Suicidal ideation [Recovered/Resolved]
  - Insomnia [Recovered/Resolved]
